FAERS Safety Report 16960179 (Version 1)
Quarter: 2019Q4

REPORT INFORMATION
  Report Type: Spontaneous
  Country: CN (occurrence: CN)
  Receive Date: 20191025
  Receipt Date: 20191025
  Transmission Date: 20200122
  Serious: Yes (Other)
  Sender: FDA-Public Use
  Company Number: CN-SUN PHARMACEUTICAL INDUSTRIES LTD-2019R1-224954

PATIENT
  Age: 32 Year
  Sex: Female

DRUGS (6)
  1. FLUOROURACIL. [Suspect]
     Active Substance: FLUOROURACIL
     Indication: GLUCOSE-6-PHOSPHATE DEHYDROGENASE DEFICIENCY
  2. DOCETAXEL. [Suspect]
     Active Substance: DOCETAXEL
     Indication: GLUCOSE-6-PHOSPHATE DEHYDROGENASE DEFICIENCY
  3. FLUOROURACIL. [Suspect]
     Active Substance: FLUOROURACIL
     Indication: NASOPHARYNGEAL CANCER
     Dosage: UNK
     Route: 065
  4. DOCETAXEL. [Suspect]
     Active Substance: DOCETAXEL
     Indication: NASOPHARYNGEAL CANCER
     Dosage: UNK
     Route: 065
  5. DEXAMETHASONE. [Suspect]
     Active Substance: DEXAMETHASONE
     Indication: NASOPHARYNGEAL CANCER
     Dosage: UNK
     Route: 065
  6. DEXAMETHASONE. [Suspect]
     Active Substance: DEXAMETHASONE
     Indication: GLUCOSE-6-PHOSPHATE DEHYDROGENASE DEFICIENCY

REACTIONS (4)
  - Diarrhoea [Unknown]
  - Neutropenia [Unknown]
  - Stomatitis [Unknown]
  - Skin disorder [Unknown]
